FAERS Safety Report 5595799-5 (Version None)
Quarter: 2008Q1

REPORT INFORMATION
  Report Type: 
  Country: None (occurrence: None)
  Receive Date: 20080118
  Receipt Date: 20080115
  Transmission Date: 20080703
  Serious: Yes (Death, Hospitalization)
  Sender: FDA-Public Use
  Company Number: D0055825A

PATIENT
  Age: 24 Year
  Sex: Female

DRUGS (5)
  1. FORTUM [Suspect]
     Indication: LUNG INFECTION
     Dosage: 2G PER DAY
     Route: 042
     Dates: start: 20030418, end: 20030430
  2. CEFUROXIME [Suspect]
     Indication: LUNG INFECTION
  3. DOXYCYCLIN [Suspect]
     Indication: LUNG INFECTION
     Route: 065
     Dates: start: 20030429
  4. MULTIPLE MEDICATION [Suspect]
  5. MULTIPLE MEDICATION [Concomitant]

REACTIONS (7)
  - BLISTER [None]
  - GENITAL ERYTHEMA [None]
  - LIP EROSION [None]
  - OCULAR HYPERAEMIA [None]
  - PYREXIA [None]
  - RASH MACULAR [None]
  - STEVENS-JOHNSON SYNDROME [None]
